FAERS Safety Report 8533509-X (Version None)
Quarter: 2012Q3

REPORT INFORMATION
  Report Type: 
  Country: None (occurrence: None)
  Receive Date: 20120724
  Receipt Date: 20120712
  Transmission Date: 20120928
  Serious: Yes (Hospitalization)
  Sender: FDA-Public Use
  Company Number: CH-ELI_LILLY_AND_COMPANY-CH201205005660

PATIENT
  Sex: Female
  Weight: 62 kg

DRUGS (4)
  1. ASPIRIN [Concomitant]
     Dosage: 100 MG, QD
  2. EFFIENT [Suspect]
     Dosage: 10 MG, QD
  3. EFFIENT [Suspect]
     Indication: MYOCARDIAL ISCHAEMIA
     Dosage: 60 MG, LOADING DOSE
     Dates: start: 20111114
  4. ASPIRIN [Concomitant]
     Dosage: UNK, LOADING DOSE

REACTIONS (3)
  - ACUTE MYOCARDIAL INFARCTION [None]
  - IN-STENT CORONARY ARTERY RESTENOSIS [None]
  - WRONG TECHNIQUE IN DRUG USAGE PROCESS [None]
